FAERS Safety Report 6746500-0 (Version None)
Quarter: 2010Q2

REPORT INFORMATION
  Report Type: 
  Country: None (occurrence: None)
  Receive Date: 20100528
  Receipt Date: 20091019
  Transmission Date: 20101027
  Serious: No
  Sender: FDA-Public Use
  Company Number: US-ASTRAZENECA-2009SE32105

PATIENT
  Age: 17 Year
  Sex: Male

DRUGS (4)
  1. PRILOSEC OTC [Suspect]
     Indication: GASTROOESOPHAGEAL REFLUX DISEASE
     Route: 048
  2. FISH OIL [Concomitant]
     Dosage: UNKNOWN
  3. ZINC [Concomitant]
     Dosage: UNKNOWN
  4. VITAMIN B COMPLEX                  /00003501/ [Concomitant]
     Dosage: UNKNOWN

REACTIONS (2)
  - DRUG ADMINISTRATION ERROR [None]
  - NAUSEA [None]
